FAERS Safety Report 5273257-5 (Version None)
Quarter: 2007Q1

REPORT INFORMATION
  Report Type: 
  Country: None (occurrence: None)
  Receive Date: 20070315
  Receipt Date: 20070306
  Transmission Date: 20070707
  Serious: No
  Sender: FDA-Public Use
  Company Number: 2007-155188-NL

PATIENT
  Age: 43 Year
  Sex: Female

DRUGS (1)
  1. ETONOGESIREL [Suspect]
     Dosage: DF NI
     Dates: start: 20020704, end: 20061109

REACTIONS (7)
  - DEVICE MIGRATION [None]
  - IMPLANT SITE FIBROSIS [None]
  - MOBILITY DECREASED [None]
  - MUSCULOSKELETAL DISORDER [None]
  - PAIN IN EXTREMITY [None]
  - PARAESTHESIA [None]
  - TENDON DISORDER [None]
